FAERS Safety Report 13899644 (Version 1)
Quarter: 2017Q3

REPORT INFORMATION
  Report Type: Spontaneous
  Country: US (occurrence: US)
  Receive Date: 20170823
  Receipt Date: 20170823
  Transmission Date: 20171127
  Serious: No
  Sender: FDA-Public Use
  Company Number: US-JAZZ-2017-US-008326

PATIENT
  Age: 19 Year
  Sex: Male

DRUGS (3)
  1. XYREM [Suspect]
     Active Substance: SODIUM OXYBATE
     Indication: NARCOLEPSY
     Dosage: 3.75G, BID
     Route: 048
     Dates: start: 201706, end: 201706
  2. XYREM [Suspect]
     Active Substance: SODIUM OXYBATE
     Dosage: 3.75 G, BID
     Route: 048
     Dates: start: 201706, end: 2017
  3. XYREM [Suspect]
     Active Substance: SODIUM OXYBATE
     Dosage: 3 G, BID
     Route: 048
     Dates: start: 201706, end: 201706

REACTIONS (12)
  - Hypoaesthesia [Unknown]
  - Asthenia [Not Recovered/Not Resolved]
  - Paraesthesia [Unknown]
  - Muscle spasms [Unknown]
  - Abdominal pain [Not Recovered/Not Resolved]
  - Dysphagia [Unknown]
  - Retching [Not Recovered/Not Resolved]
  - Night sweats [Unknown]
  - Nausea [Unknown]
  - Formication [Unknown]
  - Condition aggravated [Not Recovered/Not Resolved]
  - Headache [Unknown]

NARRATIVE: CASE EVENT DATE: 2017
